FAERS Safety Report 25683228 (Version 1)
Quarter: 2025Q3

REPORT INFORMATION
  Report Type: Report from Study
  Country: US (occurrence: US)
  Receive Date: 20250814
  Receipt Date: 20250814
  Transmission Date: 20251021
  Serious: Yes (Other)
  Sender: ALEXION PHARMACEUTICALS
  Company Number: US-AstraZeneca-CH-00930338A

PATIENT
  Age: 78 Year
  Sex: Female
  Weight: 60.826 kg

DRUGS (26)
  1. ACALABRUTINIB [Suspect]
     Active Substance: ACALABRUTINIB
     Indication: Chronic lymphocytic leukaemia (in remission)
     Dosage: 100 MILLIGRAM, BID
     Dates: start: 20250721, end: 202507
  2. ADVAIR HFA [Concomitant]
     Active Substance: FLUTICASONE PROPIONATE\SALMETEROL XINAFOATE
     Route: 065
  3. PROBIOTICS NOS [Concomitant]
     Active Substance: PROBIOTICS NOS
     Route: 065
  4. ACYCLOVIR [Concomitant]
     Active Substance: ACYCLOVIR
     Route: 065
  5. ALLOPURINOL [Concomitant]
     Active Substance: ALLOPURINOL
     Route: 065
  6. AMBIEN [Concomitant]
     Active Substance: ZOLPIDEM TARTRATE
     Route: 065
  7. AZELASTINE [Concomitant]
     Active Substance: AZELASTINE
     Route: 065
  8. MUCINEX [Concomitant]
     Active Substance: GUAIFENESIN
     Route: 065
  9. NASACORT [Concomitant]
     Active Substance: TRIAMCINOLONE ACETONIDE
     Route: 065
  10. Omega [Concomitant]
     Route: 065
  11. ONDANSETRON [Concomitant]
     Active Substance: ONDANSETRON
     Route: 065
  12. PRIVIGEN [Concomitant]
     Active Substance: HUMAN IMMUNOGLOBULIN G
     Route: 065
  13. PROCHLORPERAZINE MALEATE [Concomitant]
     Active Substance: PROCHLORPERAZINE MALEATE
     Route: 065
  14. VENCLEXTA [Concomitant]
     Active Substance: VENETOCLAX
     Route: 065
  15. BIOTIN [Concomitant]
     Active Substance: BIOTIN
     Route: 065
  16. BROMELAINS [Concomitant]
     Active Substance: BROMELAINS
     Route: 065
  17. CALCIUM\MAGNESIUM [Concomitant]
     Active Substance: CALCIUM\MAGNESIUM
     Route: 065
  18. CLARITIN [Concomitant]
     Active Substance: LORATADINE
     Route: 065
  19. GLUCOSAMINE [Concomitant]
     Active Substance: GLUCOSAMINE
     Route: 065
  20. MONTELUKAST SODIUM [Concomitant]
     Active Substance: MONTELUKAST SODIUM
     Route: 065
  21. VITAMIN D3 [Concomitant]
     Active Substance: CHOLECALCIFEROL
     Route: 065
  22. VITAMIN A [Concomitant]
     Active Substance: VITAMIN A
     Route: 065
  23. VITAMIN B12 [Concomitant]
     Active Substance: CYANOCOBALAMIN
     Route: 065
  24. VITAMIN C [Concomitant]
     Active Substance: ASCORBIC ACID
     Route: 065
  25. MUPIROCIN [Concomitant]
     Active Substance: MUPIROCIN
  26. SINGULAIR [Concomitant]
     Active Substance: MONTELUKAST SODIUM
     Route: 065

REACTIONS (3)
  - Immunodeficiency [Not Recovered/Not Resolved]
  - Tumour lysis syndrome [Recovered/Resolved]
  - Immunoglobulins decreased [Not Recovered/Not Resolved]

NARRATIVE: CASE EVENT DATE: 20250101
